FAERS Safety Report 17890511 (Version 1)
Quarter: 2020Q2

REPORT INFORMATION
  Report Type: Spontaneous
  Country: DK (occurrence: DK)
  Receive Date: 20200612
  Receipt Date: 20200612
  Transmission Date: 20200714
  Serious: Yes (Other)
  Sender: FDA-Public Use
  Company Number: DK-MYLANLABS-2020M1056061

PATIENT
  Age: 27 Year
  Sex: Female

DRUGS (1)
  1. FENTANYL MYLAN [Suspect]
     Active Substance: FENTANYL
     Indication: NEURALGIA
     Dosage: 12 MICROGRAM, QH
     Route: 062

REACTIONS (5)
  - Drug ineffective [Not Recovered/Not Resolved]
  - Withdrawal syndrome [Unknown]
  - Breakthrough pain [Unknown]
  - Product adhesion issue [Not Recovered/Not Resolved]
  - Headache [Unknown]

NARRATIVE: CASE EVENT DATE: 2019
